FAERS Safety Report 8429070-0 (Version None)
Quarter: 2012Q2

REPORT INFORMATION
  Report Type: 
  Country: None (occurrence: None)
  Receive Date: 20120612
  Receipt Date: 20120601
  Transmission Date: 20120825
  Serious: Yes (Hospitalization, Other)
  Sender: FDA-Public Use
  Company Number: BE-JNJFOC-20120512679

PATIENT
  Age: 35 Year
  Sex: Female
  Weight: 50 kg

DRUGS (5)
  1. COLITOFALK [Concomitant]
     Indication: COLITIS ULCERATIVE
     Route: 054
     Dates: start: 20120301
  2. TEMAZEPAM [Concomitant]
     Indication: ABDOMINAL PAIN
     Route: 048
     Dates: start: 20111207
  3. ERYTHROMYCIN STEARATE [Concomitant]
     Indication: IMPAIRED GASTRIC EMPTYING
     Route: 048
     Dates: start: 20111207
  4. REMICADE [Suspect]
     Indication: COLITIS ULCERATIVE
     Route: 042
  5. ESTRADIOL VALERATE/DIENOGEST [Concomitant]
     Indication: CONTRACEPTION
     Route: 048
     Dates: start: 19770718

REACTIONS (1)
  - ABDOMINAL SYMPTOM [None]
